FAERS Safety Report 15640040 (Version 1)
Quarter: 2018Q4

REPORT INFORMATION
  Report Type: Spontaneous
  Country: JP (occurrence: JP)
  Receive Date: 20181120
  Receipt Date: 20181120
  Transmission Date: 20190205
  Serious: Yes (Other)
  Sender: FDA-Public Use
  Company Number: PHJP2018JP019577

PATIENT
  Age: 38 Year
  Sex: Male

DRUGS (1)
  1. GLIVEC [Suspect]
     Active Substance: IMATINIB MESYLATE
     Indication: PRODUCT USED FOR UNKNOWN INDICATION
     Dosage: UNK
     Route: 048

REACTIONS (10)
  - Nausea [Unknown]
  - Pneumonia [Unknown]
  - Throat irritation [Unknown]
  - Graft versus host disease [Unknown]
  - Renal impairment [Unknown]
  - Enzyme level increased [Unknown]
  - Cataract [Unknown]
  - Hypothyroidism [Unknown]
  - Thyroid mass [Unknown]
  - Vomiting [Unknown]
